FAERS Safety Report 6747370-7 (Version None)
Quarter: 2010Q2

REPORT INFORMATION
  Report Type: 
  Country: None (occurrence: None)
  Receive Date: 20100528
  Receipt Date: 20100520
  Transmission Date: 20101027
  Serious: Yes (Hospitalization)
  Sender: FDA-Public Use
  Company Number: B0650343A

PATIENT
  Sex: Female

DRUGS (7)
  1. VALTREX [Suspect]
     Indication: HERPES ZOSTER
     Dosage: 3G PER DAY
     Route: 048
     Dates: start: 20100409, end: 20100417
  2. LOXOPROFEN [Concomitant]
     Route: 048
  3. MUCOSTA [Concomitant]
  4. VITAMEDIN [Concomitant]
  5. GASMOTIN [Concomitant]
  6. ALITHIA N [Concomitant]
  7. SUPROFEN [Concomitant]

REACTIONS (4)
  - ALTERED STATE OF CONSCIOUSNESS [None]
  - DYSARTHRIA [None]
  - ENCEPHALOPATHY [None]
  - MUSCULAR WEAKNESS [None]
